FAERS Safety Report 20170352 (Version 1)
Quarter: 2021Q4

REPORT INFORMATION
  Report Type: Spontaneous
  Country: US (occurrence: None)
  Receive Date: 20211209
  Receipt Date: 20211209
  Transmission Date: 20220304
  Serious: Yes (Hospitalization)
  Sender: FDA-Public Use
  Company Number: None

PATIENT
  Sex: Male
  Weight: 63.23 kg

DRUGS (16)
  1. CAPECITABINE [Suspect]
     Active Substance: CAPECITABINE
     Indication: Chronic lymphocytic leukaemia
     Dosage: FREQUENCY : EVERY 12 HOURS;  14 DAYS/ 7 DAYS OFF?
     Route: 048
  2. CAPECITABINE [Suspect]
     Active Substance: CAPECITABINE
     Indication: Chronic lymphocytic leukaemia
     Dosage: FREQUENCY : EVERY 12 HOURS; 14 DAYS/7 DAYS OFF?
  3. BUDESONIDE [Concomitant]
     Active Substance: BUDESONIDE
  4. FUROSEMIDE [Concomitant]
     Active Substance: FUROSEMIDE
  5. LINZESS [Concomitant]
     Active Substance: LINACLOTIDE
  6. LORATADINE [Concomitant]
     Active Substance: LORATADINE
  7. METFORMIN [Concomitant]
     Active Substance: METFORMIN HYDROCHLORIDE
  8. MONTELUKAST [Concomitant]
     Active Substance: MONTELUKAST SODIUM
  9. VITAMINS [Concomitant]
     Active Substance: VITAMINS
  10. PANTOPRAZOLE [Concomitant]
     Active Substance: PANTOPRAZOLE
  11. PRAMIPEXOLE [Concomitant]
     Active Substance: PRAMIPEXOLE
  12. SYNTHROID [Concomitant]
     Active Substance: LEVOTHYROXINE SODIUM
  13. MYRBETRIQ [Concomitant]
     Active Substance: MIRABEGRON
  14. CEPHALEXIN [Concomitant]
     Active Substance: CEPHALEXIN
  15. IMBRUVICA [Concomitant]
     Active Substance: IBRUTINIB
  16. PIOGLITAZONE [Concomitant]
     Active Substance: PIOGLITAZONE

REACTIONS (1)
  - Hospitalisation [None]
